FAERS Safety Report 15525621 (Version 1)
Quarter: 2018Q4

REPORT INFORMATION
  Report Type: Spontaneous
  Country: US (occurrence: US)
  Receive Date: 20181018
  Receipt Date: 20181018
  Transmission Date: 20190205
  Serious: No
  Sender: FDA-Public Use
  Company Number: US-TEVA-809499ACC

PATIENT
  Sex: Female

DRUGS (1)
  1. TRI-LO-SPRINTEC [Suspect]
     Active Substance: ETHINYL ESTRADIOL\NORGESTIMATE

REACTIONS (9)
  - Breast enlargement [Unknown]
  - Loss of libido [Unknown]
  - Mood altered [Unknown]
  - Emotional disorder [Unknown]
  - Acne cystic [Unknown]
  - Breast tenderness [Unknown]
  - Product substitution issue [Unknown]
  - Breast pain [Unknown]
  - Mental disorder [Unknown]
